FAERS Safety Report 5793421-6 (Version None)
Quarter: 2008Q2

REPORT INFORMATION
  Report Type: 
  Country: None (occurrence: None)
  Receive Date: 20080627
  Receipt Date: 20080623
  Transmission Date: 20081010
  Serious: Yes (Other)
  Sender: FDA-Public Use
  Company Number: JP-AVENTIS-200811916JP

PATIENT

DRUGS (3)
  1. AMARYL [Suspect]
     Route: 048
     Dates: start: 20080614
  2. BASEN [Concomitant]
  3. ARICEPT [Concomitant]

REACTIONS (1)
  - BLISTER [None]
